FAERS Safety Report 5562850-8 (Version None)
Quarter: 2007Q4

REPORT INFORMATION
  Report Type: 
  Country: None (occurrence: None)
  Receive Date: 20071212
  Receipt Date: 20071212
  Transmission Date: 20080405
  Serious: Yes (Hospitalization)
  Sender: FDA-Public Use
  Company Number: None

PATIENT
  Age: 67 Year
  Sex: Male
  Weight: 64.5 kg

DRUGS (8)
  1. ESCITALOPRAM [Suspect]
     Indication: GENERALISED ANXIETY DISORDER
     Dosage: 10 MG OD - ORAL
     Route: 048
     Dates: start: 20070613, end: 20070616
  2. METOCLOPRAMIDE [Concomitant]
  3. LEVOTHYROXINE SODIUM [Concomitant]
  4. SAW PALMETTO [Concomitant]
  5. ACETYLSALICYLIC ACID SRT [Concomitant]
  6. NIACIN [Concomitant]
  7. FISH OIL [Concomitant]
  8. GINKGO BILOBA [Concomitant]

REACTIONS (9)
  - BLOOD BILIRUBIN INCREASED [None]
  - CONDUCTION DISORDER [None]
  - MITRAL VALVE INCOMPETENCE [None]
  - NAUSEA [None]
  - NON-CARDIAC CHEST PAIN [None]
  - PULMONARY VALVE INCOMPETENCE [None]
  - QRS AXIS ABNORMAL [None]
  - SINUS ARRHYTHMIA [None]
  - TRICUSPID VALVE INCOMPETENCE [None]
